FAERS Safety Report 19266980 (Version 1)
Quarter: 2021Q2

REPORT INFORMATION
  Report Type: Spontaneous
  Country: SE (occurrence: SE)
  Receive Date: 20210517
  Receipt Date: 20210517
  Transmission Date: 20210717
  Serious: Yes (Hospitalization, Disabling)
  Sender: FDA-Public Use
  Company Number: SE-ALLERGAN-2118299US

PATIENT
  Sex: Female
  Weight: 95 kg

DRUGS (8)
  1. OMEPRAZOL ABECE [Concomitant]
     Active Substance: OMEPRAZOLE
     Indication: PRODUCT USED FOR UNKNOWN INDICATION
     Dosage: 20 MG, QD
     Route: 065
     Dates: start: 20200226
  2. AMLODIPINE [Concomitant]
     Active Substance: AMLODIPINE BESYLATE
     Indication: PRODUCT USED FOR UNKNOWN INDICATION
     Dosage: 10 MG, QD
     Route: 048
     Dates: start: 20210325
  3. TRUXAL [CHLORPROTHIXENE HYDROCHLORIDE] [Suspect]
     Active Substance: CHLORPROTHIXENE
     Indication: INSOMNIA
     Dosage: DOSAGE: 3 TABLETS PER DAY
     Route: 048
     Dates: start: 20200731
  4. CANDESARTAN SANDOZ [Suspect]
     Active Substance: CANDESARTAN
     Indication: ADVERSE DRUG REACTION
     Dosage: 4 MG ONCE DAILY
     Route: 048
     Dates: start: 2014
  5. ATORVASTATIN 1A FARMA [Concomitant]
     Indication: PRODUCT USED FOR UNKNOWN INDICATION
     Dosage: 40 MG, QD
     Route: 048
     Dates: start: 20210325
  6. FLUDENT HALLON [Concomitant]
     Indication: PRODUCT USED FOR UNKNOWN INDICATION
     Dosage: 1 IF NECESSARY
     Route: 065
     Dates: start: 20191030
  7. MELATONIN AGB [Concomitant]
     Indication: PRODUCT USED FOR UNKNOWN INDICATION
     Dosage: 3 MG, QD
     Route: 065
     Dates: start: 20210317
  8. CITALOPRAM HYDROBROMIDE ? BP [Suspect]
     Active Substance: CITALOPRAM HYDROBROMIDE
     Indication: INSOMNIA
     Dosage: 20 MG 2 PIECE ONCE A DAY
     Route: 048
     Dates: start: 20191230

REACTIONS (6)
  - Cerebrovascular accident [Recovered/Resolved with Sequelae]
  - Insomnia [Not Recovered/Not Resolved]
  - Product use in unapproved indication [Unknown]
  - Fear of death [Not Recovered/Not Resolved]
  - Agitation [Not Recovered/Not Resolved]
  - Paranoia [Recovered/Resolved with Sequelae]

NARRATIVE: CASE EVENT DATE: 20200928
